FAERS Safety Report 7433562-0 (Version None)
Quarter: 2011Q2

REPORT INFORMATION
  Report Type: 
  Country: None (occurrence: None)
  Receive Date: 20110422
  Receipt Date: 20110411
  Transmission Date: 20111010
  Serious: Yes (Other)
  Sender: FDA-Public Use
  Company Number: TR-WATSON-2011-05535

PATIENT
  Age: 50 Year
  Sex: Male

DRUGS (2)
  1. PREDNISOLONE [Suspect]
     Indication: PARAPARESIS
     Dosage: PULSE THERAPY
     Route: 042
  2. PREDNISOLONE [Suspect]
     Dosage: 10 MG
     Route: 048

REACTIONS (1)
  - NECROTISING RETINITIS [None]
